FAERS Safety Report 10167572 (Version 1)
Quarter: 2014Q2

REPORT INFORMATION
  Report Type: Spontaneous
  Country: US (occurrence: US)
  Receive Date: 20140512
  Receipt Date: 20140512
  Transmission Date: 20141212
  Serious: No
  Sender: FDA-Public Use
  Company Number: US-PFIZER INC-2014124445

PATIENT
  Age: 56 Year
  Sex: Female
  Weight: 100.68 kg

DRUGS (5)
  1. NEURONTIN [Suspect]
     Indication: NECK PAIN
     Dosage: 300 MG, 1X/DAY
     Route: 048
     Dates: start: 201403, end: 201404
  2. LAMISIL [Suspect]
     Indication: FUNGAL INFECTION
     Dosage: 250 MG, 1X/DAY
     Route: 048
     Dates: start: 20140411
  3. QSYMIA [Suspect]
     Indication: WEIGHT DECREASED
     Dosage: 3.75MG/23MG, 1X/DAY
     Route: 048
     Dates: start: 201402, end: 201402
  4. QSYMIA [Suspect]
     Dosage: 7.5MG/46MG, 1X/DAY
     Route: 048
     Dates: start: 201403
  5. IBUPROFEN [Concomitant]
     Indication: NECK PAIN
     Dosage: 600 MG, 2X/DAY
     Route: 048
     Dates: start: 2012

REACTIONS (4)
  - Mania [Recovered/Resolved]
  - Fungal infection [Unknown]
  - Increased appetite [Unknown]
  - Hunger [Unknown]
